FAERS Safety Report 5375600-5 (Version None)
Quarter: 2007Q2

REPORT INFORMATION
  Report Type: 
  Country: None (occurrence: None)
  Receive Date: 20070629
  Receipt Date: 20070529
  Transmission Date: 20071010
  Serious: Yes (Hospitalization, Other)
  Sender: FDA-Public Use
  Company Number: DE-GENENTECH-243706

PATIENT
  Sex: Female
  Weight: 76 kg

DRUGS (7)
  1. HERCEPTIN [Suspect]
     Indication: BREAST CANCER
     Dates: start: 20060515, end: 20060801
  2. HERCEPTIN [Suspect]
     Dosage: 6 MG/KG, UNK
     Route: 042
     Dates: start: 20060831, end: 20070411
  3. HERCEPTIN [Suspect]
     Dosage: 460 MG, Q3W
     Dates: start: 20070404
  4. TAXOTERE [Concomitant]
     Indication: BREAST CANCER
     Dates: start: 20060515, end: 20060801
  5. DIOVAN [Concomitant]
     Indication: DRUG USE FOR UNKNOWN INDICATION
  6. NOVOTHYRAL [Concomitant]
     Indication: DRUG USE FOR UNKNOWN INDICATION
  7. OMEPRAZOLE [Concomitant]
     Indication: DRUG USE FOR UNKNOWN INDICATION

REACTIONS (1)
  - LIVER DISORDER [None]
